FAERS Safety Report 5283704-0 (Version None)
Quarter: 2007Q2

REPORT INFORMATION
  Report Type: 
  Country: None (occurrence: None)
  Receive Date: 20070402
  Receipt Date: 20070312
  Transmission Date: 20071010
  Serious: Yes (Other)
  Sender: FDA-Public Use
  Company Number: US-SANOFI-SYNTHELABO-A03200702235

PATIENT
  Sex: Male

DRUGS (1)
  1. AMBIEN [Suspect]
     Indication: SLEEP DISORDER
     Route: 048
     Dates: start: 20040301, end: 20040701

REACTIONS (7)
  - ABNORMAL BEHAVIOUR [None]
  - AMNESIA [None]
  - BACK INJURY [None]
  - ILLUSION [None]
  - LOSS OF CONSCIOUSNESS [None]
  - ROAD TRAFFIC ACCIDENT [None]
  - THINKING ABNORMAL [None]
